FAERS Safety Report 4815534-5 (Version None)
Quarter: 2005Q4

REPORT INFORMATION
  Report Type: 
  Country: None (occurrence: None)
  Receive Date: 20051027
  Receipt Date: 20051020
  Transmission Date: 20060501
  Serious: Yes (Hospitalization, Disabling)
  Sender: FDA-Public Use
  Company Number: 2005092024

PATIENT
  Age: 76 Year
  Sex: Female

DRUGS (2)
  1. NITROGLYCERIN [Suspect]
     Indication: ILL-DEFINED DISORDER
     Dosage: AS NECESSARY, SUBLIINGUAL
     Route: 060
     Dates: start: 20041101
  2. PANTOPRAZOLE SODIUM [Concomitant]

REACTIONS (8)
  - BURNING SENSATION [None]
  - COMA [None]
  - DIZZINESS [None]
  - FALL [None]
  - GAIT DISTURBANCE [None]
  - HEADACHE [None]
  - HYPOACUSIS [None]
  - ILL-DEFINED DISORDER [None]
